FAERS Safety Report 4876152-6 (Version None)
Quarter: 2005Q4

REPORT INFORMATION
  Report Type: 
  Country: None (occurrence: None)
  Receive Date: 20051205
  Receipt Date: 20050818
  Transmission Date: 20060501
  Serious: No
  Sender: FDA-Public Use
  Company Number: USA0508105734

PATIENT
  Sex: Male

DRUGS (4)
  1. ALIMTA [Suspect]
     Indication: NON-SMALL CELL LUNG CANCER
     Dosage: 500 MG/M2
  2. VITAMIN B-12 [Concomitant]
  3. FOLIC ACID [Concomitant]
  4. DEXAMETHASONE TAB [Concomitant]

REACTIONS (1)
  - ERYTHEMA [None]
